FAERS Safety Report 20329687 (Version 2)
Quarter: 2022Q1

REPORT INFORMATION
  Report Type: Report from Study
  Country: US (occurrence: US)
  Receive Date: 20220112
  Receipt Date: 20220303
  Transmission Date: 20220424
  Serious: Yes (Other)
  Sender: FDA-Public Use
  Company Number: US-ABBVIE-22K-163-4230125-00

PATIENT
  Age: 67 Year
  Sex: Female

DRUGS (4)
  1. IMBRUVICA [Suspect]
     Active Substance: IBRUTINIB
     Indication: Chronic lymphocytic leukaemia
     Route: 048
     Dates: start: 20181005
  2. IMBRUVICA [Suspect]
     Active Substance: IBRUTINIB
     Indication: Prolymphocytic leukaemia
  3. RITUXAN [Concomitant]
     Active Substance: RITUXIMAB
     Indication: Chronic lymphocytic leukaemia
  4. RITUXAN [Concomitant]
     Active Substance: RITUXIMAB
     Indication: Prolymphocytic leukaemia

REACTIONS (1)
  - Central venous catheter removal [Unknown]

NARRATIVE: CASE EVENT DATE: 20211101
